FAERS Safety Report 20152522 (Version 12)
Quarter: 2022Q2

REPORT INFORMATION
  Report Type: Report from Study
  Country: AR (occurrence: None)
  Receive Date: 20211206
  Receipt Date: 20220408
  Transmission Date: 20220721
  Serious: Yes (Life-Threatening, Hospitalization)
  Sender: FDA-Public Use
  Company Number: AR-Eisai Medical Research-EC-2021-104311

PATIENT
  Age: 54 Year
  Sex: Female
  Weight: 72.5 kg

DRUGS (14)
  1. LENVATINIB [Suspect]
     Active Substance: LENVATINIB
     Indication: Pancreatic carcinoma
     Route: 048
     Dates: start: 20210903, end: 20211128
  2. PEMBROLIZUMAB [Suspect]
     Active Substance: PEMBROLIZUMAB
     Indication: Pancreatic carcinoma
     Route: 041
     Dates: start: 20210903, end: 20211014
  3. PEMBROLIZUMAB [Suspect]
     Active Substance: PEMBROLIZUMAB
     Route: 041
     Dates: start: 20211118, end: 20211118
  4. INSULIN NOS [Concomitant]
     Active Substance: INSULIN NOS
     Route: 058
     Dates: start: 20150715
  5. DICLOFENAC [Concomitant]
     Active Substance: DICLOFENAC
     Dates: start: 202101
  6. LANSOPRAZOLE [Concomitant]
     Active Substance: LANSOPRAZOLE
     Dates: start: 202101
  7. BAREX [Concomitant]
     Dates: start: 202101
  8. ITOPRIDE [Concomitant]
     Active Substance: ITOPRIDE
     Dates: start: 202102
  9. CREON [Concomitant]
     Active Substance: PANCRELIPASE AMYLASE\PANCRELIPASE LIPASE\PANCRELIPASE PROTEASE
     Dates: start: 202102
  10. BISACODIL [Concomitant]
     Dates: start: 20210902
  11. MORPHINE [Concomitant]
     Active Substance: MORPHINE
     Dates: start: 20210923
  12. ACETAMINOPHEN [Concomitant]
     Active Substance: ACETAMINOPHEN
     Dates: start: 20210923
  13. ENALAPRIL [Concomitant]
     Active Substance: ENALAPRIL
     Dates: start: 20211027
  14. VANCOMYCIN [Concomitant]
     Active Substance: VANCOMYCIN
     Dates: start: 20201209, end: 20211211

REACTIONS (1)
  - Duodenal perforation [Not Recovered/Not Resolved]

NARRATIVE: CASE EVENT DATE: 20211128
